FAERS Safety Report 6286746-1 (Version None)
Quarter: 2009Q3

REPORT INFORMATION
  Report Type: 
  Country: None (occurrence: None)
  Receive Date: 20090727
  Receipt Date: 20090727
  Transmission Date: 20100115
  Serious: Yes (Disabling)
  Sender: FDA-Public Use
  Company Number: None

PATIENT
  Age: 21 Year
  Sex: Male
  Weight: 80 kg

DRUGS (1)
  1. MIDAZOLAM HYDROCHLORIDE [Suspect]
     Indication: SEDATIVE THERAPY
     Dosage: 10 MG TITRATED OVER 10 MINUTES, UNKNOWN, INTRAVENOUS
     Route: 042

REACTIONS (5)
  - AMNESTIC DISORDER [None]
  - DELAYED RECOVERY FROM ANAESTHESIA [None]
  - IMPAIRED WORK ABILITY [None]
  - POST PROCEDURAL COMPLICATION [None]
  - UNRESPONSIVE TO STIMULI [None]
